FAERS Safety Report 10314001 (Version 2)
Quarter: 2014Q3

REPORT INFORMATION
  Report Type: Spontaneous
  Country: CA (occurrence: CA)
  Receive Date: 20140718
  Receipt Date: 20140718
  Transmission Date: 20150326
  Serious: Yes (Hospitalization)
  Sender: FDA-Public Use
  Company Number: CA-GLAXOSMITHKLINE-A0972213A

PATIENT
  Age: 54 Year
  Sex: Female
  Weight: 90 kg

DRUGS (1)
  1. BENLYSTA [Suspect]
     Active Substance: BELIMUMAB
     Indication: SYSTEMIC LUPUS ERYTHEMATOSUS
     Dosage: 850MG SEE DOSAGE TEXT
     Route: 042
     Dates: start: 20120112

REACTIONS (9)
  - Calculus ureteric [Recovered/Resolved]
  - Weight decreased [Unknown]
  - Urosepsis [Recovered/Resolved]
  - Nasopharyngitis [Unknown]
  - Nephrolithiasis [Unknown]
  - Flank pain [Recovered/Resolved]
  - Chills [Unknown]
  - Pyrexia [Recovered/Resolved]
  - White blood cell count increased [Recovered/Resolved]

NARRATIVE: CASE EVENT DATE: 20120403
